FAERS Safety Report 7995258-6 (Version None)
Quarter: 2011Q4

REPORT INFORMATION
  Report Type: 
  Country: None (occurrence: None)
  Receive Date: 20111220
  Receipt Date: 20111220
  Transmission Date: 20120403
  Serious: Yes (Death)
  Sender: FDA-Public Use
  Company Number: None

PATIENT

DRUGS (2)
  1. SUPREP BOWEL PREP KIT [Suspect]
     Indication: BOWEL PREPARATION
     Dosage: 6 OZ
     Route: 048
     Dates: start: 20111023, end: 20111024
  2. SUPREP BOWEL PREP KIT [Suspect]
     Indication: COLONOSCOPY
     Dosage: 6 OZ
     Route: 048
     Dates: start: 20111023, end: 20111024

REACTIONS (4)
  - SUDDEN CARDIAC DEATH [None]
  - MALAISE [None]
  - DYSPNOEA [None]
  - ABDOMINAL DISTENSION [None]
